FAERS Safety Report 18001623 (Version 5)
Quarter: 2020Q4

REPORT INFORMATION
  Report Type: Spontaneous
  Country: US (occurrence: US)
  Receive Date: 20200709
  Receipt Date: 20201216
  Transmission Date: 20210113
  Serious: No
  Sender: FDA-Public Use
  Company Number: US-BIOMARINAP-US-2020-130785

PATIENT
  Age: 7 Year
  Sex: Female

DRUGS (2)
  1. ALDURAZYME [Suspect]
     Active Substance: LARONIDASE
     Indication: MUCOPOLYSACCHARIDOSIS I
     Dosage: 17.4 MILLIGRAM, QW
     Route: 042
     Dates: start: 20170606
  2. ALDURAZYME [Suspect]
     Active Substance: LARONIDASE
     Dosage: 17.4 MILLIGRAM, QW
     Route: 041

REACTIONS (5)
  - Infusion site bruising [Recovering/Resolving]
  - Pyrexia [Recovering/Resolving]
  - Poor venous access [Recovered/Resolved]
  - Crying [Recovering/Resolving]
  - Product dose omission issue [Recovering/Resolving]

NARRATIVE: CASE EVENT DATE: 202006
